FAERS Safety Report 4487255-2 (Version None)
Quarter: 2004Q4

REPORT INFORMATION
  Report Type: 
  Country: None (occurrence: None)
  Receive Date: 20041022
  Receipt Date: 20041006
  Transmission Date: 20050328
  Serious: Yes (Hospitalization)
  Sender: FDA-Public Use
  Company Number: K200401523

PATIENT
  Age: 64 Year
  Sex: Male
  Weight: 55 kg

DRUGS (6)
  1. SEPTRA [Suspect]
     Indication: PNEUMONIA
     Dates: start: 20001001, end: 20001001
  2. METHOTREXATE [Suspect]
     Indication: RHEUMATOID ARTHRITIS
     Dosage: 6MG. QW
     Dates: start: 20000101, end: 20001002
  3. SULBACTAM SODIUM (SULBACTAM SODIUM) [Concomitant]
  4. AMPICILLIN SODIUM     (AMPICILLIN SODIUM) [Concomitant]
  5. ^PREDNINE^ [Concomitant]
  6. METHYLPREDNISOLONE [Concomitant]

REACTIONS (7)
  - DISSEMINATED INTRAVASCULAR COAGULATION [None]
  - DRUG INTERACTION [None]
  - HYPOXIA [None]
  - LUNG INFECTION [None]
  - PANCYTOPENIA [None]
  - PATHOGEN RESISTANCE [None]
  - PNEUMOTHORAX [None]
